FAERS Safety Report 4543590-0 (Version None)
Quarter: 2005Q1

REPORT INFORMATION
  Report Type: 
  Country: None (occurrence: None)
  Receive Date: 20050103
  Receipt Date: 20041013
  Transmission Date: 20050727
  Serious: Yes (Hospitalization)
  Sender: FDA-Public Use
  Company Number: JP-GLAXOSMITHKLINE-B0348459A

PATIENT
  Age: 70 Year
  Sex: Male
  Weight: 60 kg

DRUGS (12)
  1. PAXIL [Suspect]
     Indication: IRRITABLE BOWEL SYNDROME
     Route: 048
     Dates: start: 20040906, end: 20041008
  2. NOVAMIN [Suspect]
     Indication: NAUSEA
     Dosage: 5MG THREE TIMES PER DAY
     Route: 065
  3. GASMOTIN [Concomitant]
     Indication: ABDOMINAL PAIN
     Dosage: 15MG PER DAY
     Route: 048
  4. DAI-KENCHU-TO [Concomitant]
     Indication: ABDOMINAL PAIN
     Dosage: 2.5MG THREE TIMES PER DAY
     Route: 048
  5. SOLANAX [Concomitant]
     Indication: AUTONOMIC NERVOUS SYSTEM IMBALANCE
     Dosage: 1.6MG PER DAY
     Route: 048
     Dates: end: 20041013
  6. UBRETID [Concomitant]
     Indication: URINARY RETENTION
     Dosage: 5MG FOUR TIMES PER DAY
     Route: 048
  7. MYSLEE [Concomitant]
     Indication: INSOMNIA
     Dosage: 5MG PER DAY
     Route: 048
  8. UNKNOWN [Concomitant]
     Route: 065
  9. ALOSENN [Concomitant]
     Indication: CONSTIPATION
     Dosage: 1.5G PER DAY
     Route: 048
  10. LAXOBERON [Concomitant]
     Indication: CONSTIPATION
     Route: 048
  11. LOXONIN [Concomitant]
     Indication: PAIN
     Route: 048
  12. COLONEL [Concomitant]
     Indication: IRRITABLE BOWEL SYNDROME
     Dosage: 1500MG PER DAY
     Route: 048

REACTIONS (14)
  - ALANINE AMINOTRANSFERASE INCREASED [None]
  - ASPARTATE AMINOTRANSFERASE INCREASED [None]
  - BALANCE DISORDER [None]
  - BLOOD CREATINE PHOSPHOKINASE INCREASED [None]
  - BLOOD CREATININE INCREASED [None]
  - BLOOD UREA INCREASED [None]
  - GASTROINTESTINAL HAEMORRHAGE [None]
  - INFECTION [None]
  - LIVER DISORDER [None]
  - MUSCLE SPASMS [None]
  - PYREXIA [None]
  - RENAL IMPAIRMENT [None]
  - SEROTONIN SYNDROME [None]
  - TREMOR [None]
